FAERS Safety Report 19393695 (Version 1)
Quarter: 2021Q2

REPORT INFORMATION
  Report Type: Spontaneous
  Country: US (occurrence: US)
  Receive Date: 20210608
  Receipt Date: 20210608
  Transmission Date: 20210717
  Serious: Yes (Hospitalization)
  Sender: FDA-Public Use
  Company Number: None

PATIENT
  Age: 89 Year
  Sex: Male

DRUGS (1)
  1. VYNDAMAX [Suspect]
     Active Substance: TAFAMIDIS
     Indication: AMYLOIDOSIS
     Dosage: ?          OTHER DOSE:1 CAP ;?
     Route: 048
     Dates: start: 20210512

REACTIONS (3)
  - Fatigue [None]
  - Skin laceration [None]
  - Therapy interrupted [None]

NARRATIVE: CASE EVENT DATE: 20210607
